FAERS Safety Report 5016558-8 (Version None)
Quarter: 2006Q2

REPORT INFORMATION
  Report Type: 
  Country: None (occurrence: None)
  Receive Date: 20060602
  Receipt Date: 20060529
  Transmission Date: 20061013
  Serious: Yes (Life-Threatening, Hospitalization, Other)
  Sender: FDA-Public Use
  Company Number: PHRM2006FR01671

PATIENT
  Age: 40 Year
  Sex: Female

DRUGS (3)
  1. TEGRETOL [Suspect]
     Indication: DEPRESSION
     Dosage: 400 MG, QD
     Route: 048
     Dates: start: 20050501
  2. DIANE [Suspect]
     Route: 048
     Dates: start: 20051001, end: 20051101
  3. PROZAC [Concomitant]
     Dosage: 2 DF DAILY
     Route: 048

REACTIONS (2)
  - PHLEBITIS [None]
  - PULMONARY EMBOLISM [None]
